FAERS Safety Report 9592916 (Version 1)
Quarter: 2013Q4

REPORT INFORMATION
  Report Type: Spontaneous
  Country: IL (occurrence: None)
  Receive Date: 20131002
  Receipt Date: 20131002
  Transmission Date: 20140711
  Serious: Yes (Death)
  Sender: FDA-Public Use
  Company Number: SYM-2013-10556

PATIENT
  Age: 57 Year
  Sex: Female

DRUGS (7)
  1. FLUOROURACIL [Suspect]
     Indication: ADRENOCORTICAL CARCINOMA
  2. CISPLATIN [Suspect]
     Indication: ADRENOCORTICAL CARCINOMA
  3. ETOPOSIDE [Suspect]
     Indication: ADRENOCORTICAL CARCINOMA
  4. MITOTANE (MITOTANE) [Concomitant]
  5. DOXORUBICIN (DOXORUBICIN) [Concomitant]
  6. EVEROLIMUS [Concomitant]
  7. STREPTOZOCIN (STREPTOZOCIN) [Concomitant]

REACTIONS (3)
  - Malignant neoplasm progression [None]
  - Adrenocortical carcinoma [None]
  - Off label use [None]
